FAERS Safety Report 5338400-8 (Version None)
Quarter: 2007Q2

REPORT INFORMATION
  Report Type: 
  Country: None (occurrence: None)
  Receive Date: 20070530
  Receipt Date: 20070522
  Transmission Date: 20071010
  Serious: Yes (Hospitalization)
  Sender: FDA-Public Use
  Company Number: US-ELI_LILLY_AND_COMPANY-US200704006180

PATIENT
  Age: 79 Year
  Sex: Female

DRUGS (3)
  1. AVANDIA [Concomitant]
     Indication: DIABETES MELLITUS NON-INSULIN-DEPENDENT
     Dosage: 2 MG, DAILY (1/D)
     Route: 048
     Dates: start: 20050101
  2. OXYGEN [Concomitant]
     Indication: OXYGEN SATURATION DECREASED
     Dosage: UNK, OTHER
     Route: 045
     Dates: start: 20061001
  3. BYETTA [Suspect]
     Indication: DIABETES MELLITUS NON-INSULIN-DEPENDENT
     Dosage: 5 UG, 2/D
     Route: 058
     Dates: start: 20070201

REACTIONS (7)
  - CONFUSIONAL STATE [None]
  - DEPRESSION [None]
  - HYPERSOMNIA [None]
  - INCORRECT DOSE ADMINISTERED [None]
  - MEDICATION ERROR [None]
  - MEMORY IMPAIRMENT [None]
  - OXYGEN SATURATION DECREASED [None]
